FAERS Safety Report 12983178 (Version 1)
Quarter: 2016Q4

REPORT INFORMATION
  Report Type: Spontaneous
  Country: US (occurrence: US)
  Receive Date: 20161129
  Receipt Date: 20161129
  Transmission Date: 20170207
  Serious: No
  Sender: FDA-Public Use
  Company Number: US-MALLINCKRODT-T201605368

PATIENT
  Sex: Female
  Weight: 75 kg

DRUGS (2)
  1. FENTANYL TRANSDERMAL SYSTEM [Suspect]
     Active Substance: FENTANYL
     Indication: SPINAL DISORDER
     Dosage: 75 MCG/HR, Q72H
     Route: 062
     Dates: start: 2012, end: 2016
  2. FENTANYL TRANSDERMAL SYSTEM [Suspect]
     Active Substance: FENTANYL
     Dosage: 100 MCG/HR, Q72H
     Route: 062
     Dates: start: 2016

REACTIONS (1)
  - Alopecia [Not Recovered/Not Resolved]
